FAERS Safety Report 6103382-8 (Version None)
Quarter: 2009Q1

REPORT INFORMATION
  Report Type: 
  Country: None (occurrence: None)
  Receive Date: 20090305
  Receipt Date: 20090225
  Transmission Date: 20090719
  Serious: Yes (Other)
  Sender: FDA-Public Use
  Company Number: FR-BAYER-200824515GPV

PATIENT
  Age: 60 Year
  Sex: Male
  Weight: 73 kg

DRUGS (4)
  1. NEXAVAR [Suspect]
     Indication: RENAL CELL CARCINOMA
     Route: 048
     Dates: start: 20071220
  2. NEXAVAR [Suspect]
     Route: 048
     Dates: end: 20080208
  3. NEXAVAR [Suspect]
     Route: 048
     Dates: start: 20080526
  4. KARDEGIC [ACETYLSALICYLATE LYSINE] [Concomitant]
     Indication: DRUG USE FOR UNKNOWN INDICATION
     Route: 065

REACTIONS (6)
  - ABDOMINAL ABSCESS [None]
  - ACNE [None]
  - ACUTE PULMONARY OEDEMA [None]
  - DIVERTICULAR FISTULA [None]
  - DIVERTICULAR PERFORATION [None]
  - PALMAR-PLANTAR ERYTHRODYSAESTHESIA SYNDROME [None]
